FAERS Safety Report 13257949 (Version 1)
Quarter: 2017Q1

REPORT INFORMATION
  Report Type: Spontaneous
  Country: FR (occurrence: FR)
  Receive Date: 20170221
  Receipt Date: 20170221
  Transmission Date: 20170428
  Serious: Yes (Life-Threatening, Hospitalization)
  Sender: FDA-Public Use
  Company Number: FR-009507513-1702FRA007307

PATIENT
  Age: 68 Year
  Sex: Female

DRUGS (5)
  1. ESMERON [Suspect]
     Active Substance: ROCURONIUM BROMIDE
     Indication: GENERAL ANAESTHESIA
     Dosage: UNK UNK, ONCE
     Route: 042
     Dates: start: 20170103, end: 20170103
  2. SUFENTANIL [Suspect]
     Active Substance: SUFENTANIL
     Indication: PERIOPERATIVE ANALGESIA
     Dosage: UNK, ONCE
     Route: 042
     Dates: start: 20170103, end: 20170103
  3. DEXAMETHASONE MYLAN [Suspect]
     Active Substance: DEXAMETHASONE
     Dosage: UNK, ONCE
     Route: 042
     Dates: start: 20170103, end: 20170103
  4. PROPOFOL. [Suspect]
     Active Substance: PROPOFOL
     Indication: GENERAL ANAESTHESIA
     Dosage: UNK UNK, ONCE
     Route: 042
     Dates: start: 20170103, end: 20170103
  5. KETAMINE [Suspect]
     Active Substance: KETAMINE
     Indication: GENERAL ANAESTHESIA
     Dosage: UNK, ONCE
     Route: 042
     Dates: start: 20170103, end: 20170103

REACTIONS (3)
  - Anaphylactic shock [Recovered/Resolved]
  - Tryptase increased [Recovered/Resolved]
  - Histamine level increased [Recovered/Resolved]

NARRATIVE: CASE EVENT DATE: 20170103
